FAERS Safety Report 21876798 (Version 1)
Quarter: 2023Q1

REPORT INFORMATION
  Report Type: Report from Study
  Country: US (occurrence: US)
  Receive Date: 20230118
  Receipt Date: 20230118
  Transmission Date: 20230417
  Serious: No
  Sender: FDA-Public Use
  Company Number: US-ABBVIE-4241978

PATIENT
  Sex: Female

DRUGS (2)
  1. HUMIRA [Suspect]
     Active Substance: ADALIMUMAB
     Indication: Psoriatic arthropathy
     Route: 058
  2. HUMIRA [Suspect]
     Active Substance: ADALIMUMAB
     Indication: Psoriasis
     Route: 058

REACTIONS (5)
  - Feeling abnormal [Unknown]
  - COVID-19 [Recovered/Resolved]
  - Abdominal pain upper [Unknown]
  - Tremor [Unknown]
  - Balance disorder [Unknown]

NARRATIVE: CASE EVENT DATE: 20220101
